FAERS Safety Report 5265429-0 (Version None)
Quarter: 2007Q1

REPORT INFORMATION
  Report Type: 
  Country: None (occurrence: None)
  Receive Date: 20061213
  Receipt Date: 20050929
  Transmission Date: 20070707
  Serious: Yes (Other)
  Sender: FDA-Public Use
  Company Number: 2005UW14618

PATIENT
  Age: 76 Year
  Sex: Female

DRUGS (13)
  1. IRESSA [Suspect]
     Indication: LUNG NEOPLASM MALIGNANT
     Dosage: 250 MG PO
     Route: 048
  2. ASPIRIN [Concomitant]
  3. LASIX [Concomitant]
  4. NEURONTIN [Concomitant]
  5. PREDNISONE [Concomitant]
  6. MORPHINE [Concomitant]
  7. LOPERSSOR [Concomitant]
  8. COUMADIN [Concomitant]
  9. POTASSIUM ACETATE [Concomitant]
  10. ZOFRAN [Concomitant]
  11. NYSTATIN [Concomitant]
  12. LACTULOSE [Concomitant]
  13. ALBUTEROL [Concomitant]

REACTIONS (1)
  - ORAL CANDIDIASIS [None]
